FAERS Safety Report 12857480 (Version 1)
Quarter: 2016Q4

REPORT INFORMATION
  Report Type: Spontaneous
  Country: CA (occurrence: CA)
  Receive Date: 20161018
  Receipt Date: 20161018
  Transmission Date: 20170207
  Serious: Yes (Life-Threatening)
  Sender: FDA-Public Use
  Company Number: CA-BAYER-2016-198112

PATIENT
  Age: 35 Year
  Sex: Female
  Weight: 107 kg

DRUGS (4)
  1. MIRENA [Suspect]
     Active Substance: LEVONORGESTREL
     Indication: CONTRACEPTION
     Dosage: 20 MCG/24HR, CONT
     Route: 015
  2. CITALOPRAM [Concomitant]
     Active Substance: CITALOPRAM HYDROBROMIDE
  3. ATIVAN [Concomitant]
     Active Substance: LORAZEPAM
  4. AMITRIPTYLINE [Concomitant]
     Active Substance: AMITRIPTYLINE

REACTIONS (13)
  - Alopecia [Recovering/Resolving]
  - Anxiety [Recovering/Resolving]
  - Arthralgia [Recovering/Resolving]
  - Constipation [Recovering/Resolving]
  - Depression [Recovering/Resolving]
  - Increased appetite [Recovering/Resolving]
  - Pain [Recovering/Resolving]
  - Acne [Recovering/Resolving]
  - Weight increased [Recovering/Resolving]
  - Suicidal ideation [Recovering/Resolving]
  - Condition aggravated [Recovering/Resolving]
  - Mood swings [Recovering/Resolving]
  - Pruritus [Recovering/Resolving]
